FAERS Safety Report 21571004 (Version 1)
Quarter: 2022Q4

REPORT INFORMATION
  Report Type: Spontaneous
  Country: KR (occurrence: KR)
  Receive Date: 20221109
  Receipt Date: 20221109
  Transmission Date: 20230112
  Serious: Yes (Hospitalization, Other)
  Sender: FDA-Public Use
  Company Number: KR-Accord-284915

PATIENT
  Age: 39 Year
  Sex: Male

DRUGS (3)
  1. MYCOPHENOLATE MOFETIL [Suspect]
     Active Substance: MYCOPHENOLATE MOFETIL
     Indication: Immunosuppressant drug therapy
  2. TACROLIMUS [Suspect]
     Active Substance: TACROLIMUS
     Indication: Immunosuppressant drug therapy
  3. PREDNISOLONE [Suspect]
     Active Substance: PREDNISOLONE
     Indication: Immunosuppressant drug therapy

REACTIONS (9)
  - Hepatitis fulminant [Recovered/Resolved]
  - Myocarditis [Recovered/Resolved]
  - Enterococcal infection [Recovered/Resolved]
  - Disseminated varicella zoster virus infection [Recovered/Resolved]
  - Thrombotic microangiopathy [Recovered/Resolved]
  - Multiple organ dysfunction syndrome [Recovered/Resolved]
  - Herpes zoster disseminated [Recovered/Resolved]
  - Gastritis erosive [Recovered/Resolved]
  - Transplant rejection [Unknown]
